FAERS Safety Report 12304172 (Version 1)
Quarter: 2016Q2

REPORT INFORMATION
  Report Type: Spontaneous
  Country: US (occurrence: US)
  Receive Date: 20160426
  Receipt Date: 20160426
  Transmission Date: 20160815
  Serious: No
  Sender: FDA-Public Use
  Company Number: US-JNJFOC-20160319510

PATIENT
  Age: 14 Year
  Sex: Male
  Weight: 117 kg

DRUGS (2)
  1. METHYLPHENIDATE HYDROCHLORIDE. [Suspect]
     Active Substance: METHYLPHENIDATE HYDROCHLORIDE
     Indication: ATTENTION DEFICIT/HYPERACTIVITY DISORDER
     Route: 048
     Dates: start: 20040507, end: 20150701
  2. METHYLPHENIDATE HYDROCHLORIDE. [Suspect]
     Active Substance: METHYLPHENIDATE HYDROCHLORIDE
     Indication: ATTENTION DEFICIT/HYPERACTIVITY DISORDER
     Route: 048
     Dates: start: 20150818

REACTIONS (8)
  - Euphoric mood [Unknown]
  - Staring [Recovered/Resolved]
  - Mental status changes [Unknown]
  - Flat affect [Recovered/Resolved]
  - Abnormal behaviour [Unknown]
  - Decreased appetite [Recovered/Resolved]
  - Compulsions [Unknown]
  - Aggression [Unknown]

NARRATIVE: CASE EVENT DATE: 2013
